FAERS Safety Report 7562627-8 (Version None)
Quarter: 2011Q2

REPORT INFORMATION
  Report Type: 
  Country: None (occurrence: None)
  Receive Date: 20110622
  Receipt Date: 20110620
  Transmission Date: 20111010
  Serious: Yes (Other)
  Sender: FDA-Public Use
  Company Number: DE-SANOFI-AVENTIS-2011SA038875

PATIENT
  Age: 70 Year
  Sex: Male

DRUGS (4)
  1. MULTAQ [Suspect]
     Indication: ATRIAL FIBRILLATION
     Route: 065
     Dates: start: 20110516, end: 20110519
  2. BISOPROLOL FUMARATE [Concomitant]
     Route: 065
  3. ATORVASTATIN [Concomitant]
     Route: 065
  4. ATORVASTATIN [Concomitant]
     Route: 065

REACTIONS (4)
  - ATRIAL FLUTTER [None]
  - AGITATION [None]
  - ATRIAL FIBRILLATION [None]
  - VISUAL IMPAIRMENT [None]
